FAERS Safety Report 5588983-8 (Version None)
Quarter: 2008Q1

REPORT INFORMATION
  Report Type: 
  Country: None (occurrence: None)
  Receive Date: 20080111
  Receipt Date: 20071127
  Transmission Date: 20080703
  Serious: Yes (Hospitalization, Other)
  Sender: FDA-Public Use
  Company Number: US-MERCK-0709USA01459

PATIENT
  Age: 51 Year
  Sex: Male

DRUGS (9)
  1. FOSAMAX [Suspect]
     Indication: OSTEOPOROSIS
     Route: 048
     Dates: start: 20030501, end: 20051001
  2. ALPRAZOLAM [Concomitant]
     Indication: DEPRESSION
     Route: 065
     Dates: start: 19990101
  3. AMITRIPTYLINE HYDROCHLORIDE [Concomitant]
     Route: 065
     Dates: start: 20020101
  4. CELEBREX [Concomitant]
     Indication: PAIN
     Route: 065
     Dates: start: 19980101
  5. CLOTRIMAZOLE [Concomitant]
     Indication: FUNGAL INFECTION
     Route: 065
     Dates: start: 20020101
  6. HYDROXYCHLOROQUINE SULFATE [Concomitant]
     Indication: RHEUMATOID ARTHRITIS
     Route: 065
     Dates: start: 20020101, end: 20030101
  7. PREDNISONE [Concomitant]
     Indication: RHEUMATOID ARTHRITIS
     Route: 065
     Dates: start: 19900101, end: 20030101
  8. PROPOXYPHENE HYDROCHLORIDE [Concomitant]
     Indication: PAIN
     Route: 065
     Dates: start: 20020101, end: 20050101
  9. SERTRALINE HYDROCHLORIDE [Concomitant]
     Indication: DEPRESSION
     Route: 065
     Dates: start: 20020101

REACTIONS (5)
  - ARTHROPATHY [None]
  - DRUG HYPERSENSITIVITY [None]
  - LEUKOPLAKIA ORAL [None]
  - OSTEOMYELITIS [None]
  - OSTEONECROSIS [None]
